FAERS Safety Report 20827293 (Version 1)
Quarter: 2022Q2

REPORT INFORMATION
  Report Type: Spontaneous
  Country: US (occurrence: US)
  Receive Date: 20220513
  Receipt Date: 20220513
  Transmission Date: 20220720
  Serious: Yes (Other)
  Sender: FDA-Public Use
  Company Number: US-AMERICAN REGENT INC-2022001350

PATIENT
  Sex: Female

DRUGS (3)
  1. LIDOCAINE HYDROCHLORIDE [Suspect]
     Active Substance: LIDOCAINE HYDROCHLORIDE
     Indication: Ventricular arrhythmia
     Dosage: UNK
     Route: 042
  2. LIDOCAINE HYDROCHLORIDE [Suspect]
     Active Substance: LIDOCAINE HYDROCHLORIDE
     Indication: Ventricular tachycardia
     Dosage: CONTINUOUS VIA A DOUBLE LUMEN PICC LINE
     Route: 042
  3. LIDOCAINE HYDROCHLORIDE [Suspect]
     Active Substance: LIDOCAINE HYDROCHLORIDE
     Indication: Torsade de pointes

REACTIONS (4)
  - Visual impairment [Unknown]
  - Dizziness [Unknown]
  - Product use in unapproved indication [Unknown]
  - Incorrect product administration duration [Unknown]
